FAERS Safety Report 21643214 (Version 1)
Quarter: 2022Q4

REPORT INFORMATION
  Report Type: Spontaneous
  Country: CN (occurrence: None)
  Receive Date: 20221125
  Receipt Date: 20221125
  Transmission Date: 20230112
  Serious: Yes (Other)
  Sender: FDA-Public Use
  Company Number: CN-ROCHE-3222969

PATIENT
  Age: 63 Year
  Sex: Female

DRUGS (19)
  1. AVASTIN [Suspect]
     Active Substance: BEVACIZUMAB
     Indication: Lung adenocarcinoma
     Route: 065
     Dates: start: 201609
  2. AVASTIN [Suspect]
     Active Substance: BEVACIZUMAB
     Route: 065
     Dates: start: 201912
  3. AVASTIN [Suspect]
     Active Substance: BEVACIZUMAB
     Route: 065
     Dates: start: 202001
  4. AVASTIN [Suspect]
     Active Substance: BEVACIZUMAB
     Route: 065
     Dates: start: 202101
  5. HERCEPTIN [Suspect]
     Active Substance: TRASTUZUMAB
     Indication: Breast cancer metastatic
     Route: 065
     Dates: start: 20220809
  6. HERCEPTIN [Suspect]
     Active Substance: TRASTUZUMAB
     Dosage: TREATMENT ON 16-AUG-2022, 24-AUG-2022, 01-SEP-2022, 08-SEP-2022, 16-SEP-2022, 25-SEP-2022, 02-OCT-20
     Route: 065
  7. PEMETREXED [Concomitant]
     Active Substance: PEMETREXED
     Indication: Lung adenocarcinoma
     Dates: start: 20160226
  8. PEMETREXED [Concomitant]
     Active Substance: PEMETREXED
     Dosage: TREATMENT ON -MAY-2016, -SEP-2016, -DEC-2019
  9. PEMETREXED [Concomitant]
     Active Substance: PEMETREXED
     Dates: start: 202001
  10. PEMETREXED [Concomitant]
     Active Substance: PEMETREXED
     Dates: start: 202101
  11. CARBOPLATIN [Concomitant]
     Active Substance: CARBOPLATIN
     Indication: Lung adenocarcinoma
     Dates: start: 20160226
  12. CARBOPLATIN [Concomitant]
     Active Substance: CARBOPLATIN
     Dates: start: 201912
  13. CATEQUENTINIB [Concomitant]
     Active Substance: CATEQUENTINIB
     Indication: Lung adenocarcinoma
     Dates: start: 202011
  14. CATEQUENTINIB [Concomitant]
     Active Substance: CATEQUENTINIB
     Dates: start: 201912
  15. CATEQUENTINIB [Concomitant]
     Active Substance: CATEQUENTINIB
     Dates: start: 20220527
  16. NIVOLUMAB [Concomitant]
     Active Substance: NIVOLUMAB
     Indication: Lung adenocarcinoma
     Dates: start: 202110
  17. DACOMITINIB [Concomitant]
     Active Substance: DACOMITINIB
     Indication: Lung adenocarcinoma
     Dates: start: 202201
  18. OSIMERTINIB [Concomitant]
     Active Substance: OSIMERTINIB
     Indication: Lung adenocarcinoma
     Dates: start: 20220527
  19. OSIMERTINIB [Concomitant]
     Active Substance: OSIMERTINIB
     Dates: start: 20220630, end: 202210

REACTIONS (6)
  - Myelosuppression [Recovering/Resolving]
  - Hypersensitivity [Unknown]
  - Hepatic function abnormal [Recovering/Resolving]
  - Gastrointestinal disorder [Recovering/Resolving]
  - Pyrexia [Unknown]
  - Drug ineffective [Unknown]
